FAERS Safety Report 25393708 (Version 1)
Quarter: 2025Q2

REPORT INFORMATION
  Report Type: Spontaneous
  Country: BR (occurrence: BR)
  Receive Date: 20250604
  Receipt Date: 20250604
  Transmission Date: 20250717
  Serious: Yes (Disabling, Other)
  Sender: NOVO NORDISK
  Company Number: BR-NOVOPROD-1442381

PATIENT
  Age: 44 Year
  Sex: Male
  Weight: 72 kg

DRUGS (1)
  1. OZEMPIC [Suspect]
     Active Substance: SEMAGLUTIDE
     Indication: Obesity

REACTIONS (9)
  - Abnormal loss of weight [Unknown]
  - Arthralgia [Unknown]
  - Myalgia [Unknown]
  - Balance disorder [Unknown]
  - Hypoacusis [Unknown]
  - Dementia [Unknown]
  - Diplopia [Unknown]
  - Communication disorder [Unknown]
  - Product use in unapproved indication [Unknown]
